FAERS Safety Report 9554586 (Version 1)
Quarter: 2013Q3

REPORT INFORMATION
  Report Type: Spontaneous
  Country: CA (occurrence: CA)
  Receive Date: 20130925
  Receipt Date: 20130925
  Transmission Date: 20140515
  Serious: Yes (Life-Threatening, Hospitalization)
  Sender: FDA-Public Use
  Company Number: CA-MYLANLABS-2013S1020837

PATIENT
  Age: 31 Year
  Sex: Male

DRUGS (1)
  1. MORPHINE [Suspect]
     Indication: OVERDOSE
     Route: 065

REACTIONS (3)
  - Cardiac arrest [Recovered/Resolved]
  - Brain injury [Unknown]
  - Overdose [Unknown]
